FAERS Safety Report 9678870 (Version 3)
Quarter: 2014Q2

REPORT INFORMATION
  Report Type: Spontaneous
  Country: US (occurrence: US)
  Receive Date: 20131108
  Receipt Date: 20140424
  Transmission Date: 20141212
  Serious: Yes (Hospitalization)
  Sender: FDA-Public Use
  Company Number: US-B.I. PHARMACEUTICALS,INC./RIDGEFIELD-2013-BI-35460BP

PATIENT
  Age: 83 Year
  Sex: Male
  Weight: 68.04 kg

DRUGS (13)
  1. PRADAXA [Suspect]
     Indication: ATRIAL FIBRILLATION
     Dosage: 300 MG
     Route: 048
     Dates: start: 20110602, end: 20120614
  2. RYTHMOL [Concomitant]
     Dosage: 450 MG
     Route: 048
  3. SYNTHROID [Concomitant]
     Dosage: 50 MCG
     Route: 048
     Dates: start: 201108, end: 2012
  4. PERMETHRIN [Concomitant]
     Route: 061
  5. LISINOPRIL [Concomitant]
     Dosage: 20 MG
     Route: 048
     Dates: start: 2007
  6. ATORVASTATIN CALCIUM [Concomitant]
     Dosage: 20 MCG
     Route: 048
     Dates: start: 200711
  7. K-DUR [Concomitant]
     Dosage: 40 MEQ
     Route: 048
     Dates: start: 2009
  8. LASIX [Concomitant]
     Dosage: 20 MG
     Route: 048
     Dates: start: 2005
  9. ISOSORBIDE MONONITRATE [Concomitant]
     Dosage: 15 MG
     Route: 048
  10. NORVASC [Concomitant]
     Dosage: 10 MG
     Route: 048
  11. ZOLOFT [Concomitant]
     Dosage: 50 MG
     Route: 048
     Dates: start: 200807
  12. FESOL [Concomitant]
     Route: 065
  13. BAYER ASPIRIN [Concomitant]
     Route: 065

REACTIONS (4)
  - Gastrointestinal haemorrhage [Unknown]
  - Haemorrhage [Unknown]
  - Anaemia [Unknown]
  - Ischaemic stroke [Not Recovered/Not Resolved]
